FAERS Safety Report 12731929 (Version 1)
Quarter: 2016Q3

REPORT INFORMATION
  Report Type: Spontaneous
  Country: US (occurrence: US)
  Receive Date: 20160908
  Receipt Date: 20160908
  Transmission Date: 20161109
  Serious: Yes (Hospitalization)
  Sender: FDA-Public Use
  Company Number: None

PATIENT
  Age: 48 Year
  Sex: Female
  Weight: 97.52 kg

DRUGS (3)
  1. COUMADIN [Concomitant]
     Active Substance: WARFARIN SODIUM
  2. LUMIGAN [Concomitant]
     Active Substance: BIMATOPROST
  3. ACTIVELLA [Suspect]
     Active Substance: ESTRADIOL\NORETHINDRONE ACETATE
     Indication: MENOPAUSAL SYMPTOMS
     Dosage: ESTRADIOL/NORETHINDRONE (ACTIVELLA) 0.5/0.1MG 28 PILLS DAILY BY MOUTH
     Route: 048
     Dates: start: 201403, end: 201412

REACTIONS (7)
  - Superior sagittal sinus thrombosis [None]
  - Brain injury [None]
  - Headache [None]
  - Nausea [None]
  - Ischaemic stroke [None]
  - Vomiting [None]
  - Visual impairment [None]

NARRATIVE: CASE EVENT DATE: 20141205
